FAERS Safety Report 5113948-X (Version None)
Quarter: 2006Q3

REPORT INFORMATION
  Report Type: 
  Country: None (occurrence: None)
  Receive Date: 20060921
  Receipt Date: 20060901
  Transmission Date: 20061208
  Serious: Yes (Other)
  Sender: FDA-Public Use
  Company Number: 229831

PATIENT
  Age: 70 Year
  Sex: Male

DRUGS (5)
  1. AVASTIN [Suspect]
     Indication: COLON CANCER
     Dosage: 5 MG/KG, Q2W, INTRAVENOUS
     Route: 042
     Dates: start: 20060605
  2. OXALIPLATIN [Suspect]
     Indication: COLON CANCER
     Dosage: 85 MG/M2, Q2W, INTRAVENOUS
     Route: 042
     Dates: start: 20060605
  3. LEUCOVORIN (LEUCOVORIN CALCIUM) [Suspect]
     Indication: COLON CANCER
     Dosage: 400 MG/M2, Q2W, INTRAVENOUS
     Route: 042
     Dates: start: 20060605
  4. FLUOROURACIL [Suspect]
     Indication: COLON CANCER
     Dosage: 2400 MG/M2, Q2W, INTRAVENOUS; SEE IMAGE
     Route: 042
     Dates: start: 20060605
  5. FLUOROURACIL [Suspect]
     Indication: COLON CANCER
     Dosage: 2400 MG/M2, Q2W, INTRAVENOUS; SEE IMAGE
     Route: 042
     Dates: start: 20060605

REACTIONS (2)
  - PAIN [None]
  - SKIN ULCER [None]
